FAERS Safety Report 6608610-8 (Version None)
Quarter: 2010Q1

REPORT INFORMATION
  Report Type: 
  Country: None (occurrence: None)
  Receive Date: 20100301
  Receipt Date: 20100217
  Transmission Date: 20100710
  Serious: Yes (Hospitalization)
  Sender: FDA-Public Use
  Company Number: US-EISAI INC.-E7272-00048-SPO-US

PATIENT
  Age: 50 Year
  Sex: Male

DRUGS (2)
  1. ONTAK [Suspect]
     Dosage: 9MCG/KG
     Route: 041
     Dates: start: 20100217
  2. ONTAK [Suspect]
     Dosage: 9MCG/KG
     Route: 041
     Dates: start: 20100101, end: 20100101

REACTIONS (1)
  - ENTEROCOLITIS HAEMORRHAGIC [None]
